FAERS Safety Report 14485579 (Version 8)
Quarter: 2018Q2

REPORT INFORMATION
  Report Type: Spontaneous
  Country: DE (occurrence: DE)
  Receive Date: 20180205
  Receipt Date: 20180418
  Transmission Date: 20180711
  Serious: Yes (Hospitalization, Other)
  Sender: FDA-Public Use
  Company Number: DE-PFIZER INC-2018046345

PATIENT
  Age: 46 Year
  Sex: Female
  Weight: 55 kg

DRUGS (10)
  1. TILIDINE [Suspect]
     Active Substance: TILIDINE
     Indication: POSTOPERATIVE CARE
     Dosage: UNK
     Route: 065
  2. CAFFEINE/PARACETAMOL/PROPYPHENAZONE [Suspect]
     Active Substance: ACETAMINOPHEN\CAFFEINE\PROPYPHENAZONE
     Indication: POSTOPERATIVE CARE
     Dosage: UNK
     Route: 065
  3. MONO-EMBOLEX [Suspect]
     Active Substance: CERTOPARIN SODIUM
     Indication: POSTOPERATIVE CARE
     Dosage: 1 DF, DAILY
     Route: 065
     Dates: start: 20161102, end: 20161214
  4. TRAMAL [Suspect]
     Active Substance: TRAMADOL
     Indication: POSTOPERATIVE CARE
     Dosage: UNK
     Route: 065
  5. CEFIXIME. [Concomitant]
     Active Substance: CEFIXIME
     Indication: STAPHYLOCOCCAL INFECTION
     Dosage: UNK
     Route: 065
  6. NOVALGIN (METAMIZOLE SODIUM) [Suspect]
     Active Substance: METAMIZOLE SODIUM
     Indication: POSTOPERATIVE CARE
     Dosage: UNK
     Route: 065
  7. MCP [Suspect]
     Active Substance: METOCLOPRAMIDE HYDROCHLORIDE
     Indication: POSTOPERATIVE CARE
     Dosage: UNK
     Route: 065
  8. METRONIDAZOLE. [Concomitant]
     Active Substance: METRONIDAZOLE
     Indication: GASTROENTERITIS
     Dosage: 400 MG, UNK
     Route: 065
     Dates: start: 20161202, end: 20161214
  9. PANTOZOL [Suspect]
     Active Substance: PANTOPRAZOLE SODIUM
     Indication: POSTOPERATIVE CARE
     Dosage: UNK, 1X/DAY
     Route: 065
     Dates: start: 20161102, end: 20161214
  10. CLINDAMYCIN. [Concomitant]
     Active Substance: CLINDAMYCIN
     Indication: STAPHYLOCOCCAL INFECTION
     Dosage: 300 MG, 3X/DAY
     Route: 065
     Dates: start: 20161202, end: 20161214

REACTIONS (1)
  - Hepatic necrosis [Recovered/Resolved]

NARRATIVE: CASE EVENT DATE: 20161219
